FAERS Safety Report 19933357 (Version 1)
Quarter: 2021Q4

REPORT INFORMATION
  Report Type: Spontaneous
  Country: US (occurrence: US)
  Receive Date: 20211006
  Receipt Date: 20211006
  Transmission Date: 20220303
  Serious: Yes (Hospitalization)
  Sender: FDA-Public Use
  Company Number: None

PATIENT
  Age: 67 Year
  Sex: Male
  Weight: 90 kg

DRUGS (1)
  1. RUXOLITINIB [Suspect]
     Active Substance: RUXOLITINIB
     Indication: Myeloproliferative neoplasm
     Route: 048
     Dates: start: 20210305, end: 20210311

REACTIONS (7)
  - Joint swelling [None]
  - Bronchitis [None]
  - Pneumonitis [None]
  - Opportunistic infection [None]
  - Haemoptysis [None]
  - Hypoxia [None]
  - Cardiac arrest [None]

NARRATIVE: CASE EVENT DATE: 20210517
